FAERS Safety Report 19315949 (Version 1)
Quarter: 2021Q2

REPORT INFORMATION
  Report Type: Spontaneous
  Country: US (occurrence: US)
  Receive Date: 20210527
  Receipt Date: 20210527
  Transmission Date: 20210717
  Serious: No
  Sender: FDA-Public Use
  Company Number: US-SA-2021SA174839

PATIENT
  Sex: Male

DRUGS (3)
  1. DOXYCYCLIN [DOXYCYCLINE HYCLATE] [Concomitant]
  2. DUPIXENT [Suspect]
     Active Substance: DUPILUMAB
     Indication: DERMATITIS ATOPIC
     Dosage: 300 MG, QOW
     Route: 058
  3. TRIAMCINOLONE [Suspect]
     Active Substance: TRIAMCINOLONE
     Indication: RASH

REACTIONS (5)
  - Rash [Unknown]
  - Discomfort [Unknown]
  - Dry skin [Unknown]
  - Drug ineffective [Unknown]
  - Scratch [Unknown]
